FAERS Safety Report 22806476 (Version 2)
Quarter: 2024Q2

REPORT INFORMATION
  Report Type: Report from Study
  Country: US (occurrence: US)
  Receive Date: 20230810
  Receipt Date: 20240621
  Transmission Date: 20240716
  Serious: Yes (Other)
  Sender: FDA-Public Use
  Company Number: US-ABBVIE-5359274

PATIENT
  Sex: Female

DRUGS (2)
  1. HUMIRA [Suspect]
     Active Substance: ADALIMUMAB
     Indication: Rheumatoid arthritis
     Route: 058
     Dates: start: 20190620
  2. OZEMPIC [Suspect]
     Active Substance: SEMAGLUTIDE
     Indication: Weight decreased
     Route: 065

REACTIONS (7)
  - Carpal tunnel syndrome [Unknown]
  - Rheumatoid arthritis [Not Recovered/Not Resolved]
  - Spinal operation [Unknown]
  - Therapeutic response shortened [Not Recovered/Not Resolved]
  - Knee arthroplasty [Unknown]
  - Foot operation [Unknown]
  - Abdominal pain upper [Not Recovered/Not Resolved]
